FAERS Safety Report 6959613-5 (Version None)
Quarter: 2010Q3

REPORT INFORMATION
  Report Type: 
  Country: None (occurrence: None)
  Receive Date: 20100823
  Receipt Date: 20100630
  Transmission Date: 20110219
  Serious: No
  Sender: FDA-Public Use
  Company Number: 8040044

PATIENT
  Sex: Male
  Weight: 117.9 kg

DRUGS (8)
  1. CERTOLIZUMAB PEGOL [Suspect]
     Indication: CROHN'S DISEASE
     Dosage: (SUBCUTANEOUS) ; (400 MG 1X/2 WEEK SUBCUTANEOUS)
     Route: 058
     Dates: start: 20080801, end: 20081101
  2. CERTOLIZUMAB PEGOL [Suspect]
     Indication: CROHN'S DISEASE
     Dosage: (SUBCUTANEOUS) ; (400 MG 1X/2 WEEK SUBCUTANEOUS)
     Route: 058
     Dates: start: 20100501
  3. WELLBUTRIN [Concomitant]
  4. XANAX [Concomitant]
  5. NORCO [Concomitant]
  6. NEURONTIN [Concomitant]
  7. LYRICA [Concomitant]
  8. PAXIL [Concomitant]

REACTIONS (11)
  - ABDOMINAL PAIN [None]
  - ABNORMAL FAECES [None]
  - ASTHENIA [None]
  - BOWEL MOVEMENT IRREGULARITY [None]
  - BURNOUT SYNDROME [None]
  - FATIGUE [None]
  - FLATULENCE [None]
  - HEADACHE [None]
  - HYPERSOMNIA [None]
  - PAIN [None]
  - PRURITUS [None]
